FAERS Safety Report 5863623-9 (Version None)
Quarter: 2008Q3

REPORT INFORMATION
  Report Type: 
  Country: None (occurrence: None)
  Receive Date: 20080828
  Receipt Date: 20080818
  Transmission Date: 20090109
  Serious: Yes (Hospitalization)
  Sender: FDA-Public Use
  Company Number: GB-PFIZER INC-2008064315

PATIENT
  Sex: Female
  Weight: 59.5 kg

DRUGS (2)
  1. LYRICA [Suspect]
     Indication: TRIGEMINAL NEURALGIA
     Route: 048
  2. AMITRIPTYLINE HCL [Concomitant]
     Route: 048

REACTIONS (1)
  - POSTMENOPAUSAL HAEMORRHAGE [None]
